FAERS Safety Report 4611043-7 (Version None)
Quarter: 2005Q1

REPORT INFORMATION
  Report Type: 
  Country: None (occurrence: None)
  Receive Date: 20050316
  Receipt Date: 20050316
  Transmission Date: 20050727
  Serious: Yes (Hospitalization)
  Sender: FDA-Public Use
  Company Number: None

PATIENT
  Age: 76 Year
  Sex: Male
  Weight: 74.3899 kg

DRUGS (14)
  1. COUMADIN [Suspect]
     Indication: DEEP VEIN THROMBOSIS
     Dosage: 6 MG DAILY
  2. COUMADIN [Suspect]
     Indication: DISEASE RECURRENCE
     Dosage: 6 MG DAILY
  3. ASPIRIN [Suspect]
     Indication: ATRIAL FIBRILLATION
     Dosage: 81 MG DAILY
  4. ASPIRIN [Suspect]
     Indication: DEEP VEIN THROMBOSIS
     Dosage: 81 MG DAILY
  5. DONEPEZIL HCL [Concomitant]
  6. FLUOXETINE [Concomitant]
  7. HYDROCHLOROTHIAZIDE [Concomitant]
  8. ISOSORBIDE DINITRATE [Concomitant]
  9. LISINOPRIL [Concomitant]
  10. MEGESTROL [Concomitant]
  11. METOPROLOL TARTRATE [Concomitant]
  12. PHENYTOIN [Concomitant]
  13. LAMOTRIGINE [Concomitant]
  14. SIMVASTATIN [Concomitant]

REACTIONS (3)
  - GASTRIC POLYPS [None]
  - HAEMATEMESIS [None]
  - INTERNATIONAL NORMALISED RATIO INCREASED [None]
